FAERS Safety Report 5532878-2 (Version None)
Quarter: 2007Q4

REPORT INFORMATION
  Report Type: 
  Country: None (occurrence: None)
  Receive Date: 20071129
  Receipt Date: 20071129
  Transmission Date: 20080405
  Serious: Yes (Other)
  Sender: FDA-Public Use
  Company Number: None

PATIENT
  Age: 41 Year
  Sex: Male
  Weight: 99.3377 kg

DRUGS (8)
  1. SYMLIN [Suspect]
     Indication: TYPE 1 DIABETES MELLITUS
     Dosage: 60 MCG TID SQ
     Route: 058
     Dates: start: 20060101, end: 20070901
  2. HUMALOG [Concomitant]
  3. LEVOTHYROXINE SODIUM [Concomitant]
  4. ACCUPRIL [Concomitant]
  5. ACTZ [Concomitant]
  6. LEXAPRO [Concomitant]
  7. TRAZODONE HCL [Concomitant]
  8. LIPITOR [Concomitant]

REACTIONS (6)
  - ABDOMINAL DISTENSION [None]
  - DIARRHOEA [None]
  - FLATULENCE [None]
  - GASTROINTESTINAL INFECTION [None]
  - OVERGROWTH BACTERIAL [None]
  - PYREXIA [None]
